FAERS Safety Report 12750629 (Version 1)
Quarter: 2016Q3

REPORT INFORMATION
  Report Type: Spontaneous
  Country: BR (occurrence: BR)
  Receive Date: 20160916
  Receipt Date: 20160916
  Transmission Date: 20161109
  Serious: Yes (Other)
  Sender: FDA-Public Use
  Company Number: BR-PFIZER INC-2016429274

PATIENT
  Age: 85 Year
  Sex: Male
  Weight: 65 kg

DRUGS (7)
  1. LOSARTAN. [Concomitant]
     Active Substance: LOSARTAN
     Dosage: 1 UNK, UNK
  2. NEOVITE LUTEIN [Concomitant]
     Indication: VISUAL IMPAIRMENT
     Dosage: 2 DRAGGES PER DAY
     Route: 048
     Dates: start: 2011
  3. TIMOLOL MALEATE. [Concomitant]
     Active Substance: TIMOLOL MALEATE
     Dosage: 1 DROP IN EACH EVERY 12 HOURS
     Route: 047
     Dates: start: 201601
  4. LOSARTAN. [Concomitant]
     Active Substance: LOSARTAN
     Indication: HYPERTENSION
     Dosage: 2 TABLETS, DAILY
     Route: 048
     Dates: start: 2006
  5. AMLODIPINE [Concomitant]
     Active Substance: AMLODIPINE BESYLATE
     Dosage: UNK, 1X/DAY
     Route: 048
     Dates: start: 2014
  6. XALATAN [Suspect]
     Active Substance: LATANOPROST
     Dosage: 1 DROP IN EACH EYE (3UG), UNSPECIFIED FREQUENCY
     Route: 047
     Dates: start: 2013
  7. SOMALGIN [Concomitant]
     Active Substance: ASPIRIN\DIHYDROXYALUMINUM AMINOACETATE ANHYDROUS\MAGNESIUM CARBONATE
     Indication: ANTICOAGULANT THERAPY
     Dosage: UNK UNK, 1X/DAY
     Route: 048
     Dates: start: 2006

REACTIONS (3)
  - Vision blurred [Not Recovered/Not Resolved]
  - Drug dose omission [Unknown]
  - Visual acuity reduced [Not Recovered/Not Resolved]
